FAERS Safety Report 5861947-2 (Version None)
Quarter: 2008Q3

REPORT INFORMATION
  Report Type: 
  Country: None (occurrence: None)
  Receive Date: 20080827
  Receipt Date: 20080723
  Transmission Date: 20090109
  Serious: No
  Sender: FDA-Public Use
  Company Number: US-ABBOTT-08P-163-0465275-00

PATIENT
  Sex: Female
  Weight: 65.83 kg

DRUGS (4)
  1. COATED PDS [Suspect]
     Indication: INVESTIGATION ABNORMAL
     Dosage: AT BEDTIME
     Route: 048
     Dates: start: 20080712
  2. ATORVASTATIN CALCIUM [Concomitant]
     Indication: BLOOD CHOLESTEROL
     Route: 048
  3. IRON [Concomitant]
     Indication: DRUG USE FOR UNKNOWN INDICATION
     Route: 048
  4. ALLEGRA-D [Concomitant]
     Indication: HYPERSENSITIVITY
     Route: 048

REACTIONS (3)
  - BURNING SENSATION [None]
  - FEELING HOT [None]
  - PARAESTHESIA [None]
